FAERS Safety Report 6367717-3 (Version None)
Quarter: 2009Q3

REPORT INFORMATION
  Report Type: 
  Country: None (occurrence: None)
  Receive Date: 20090921
  Receipt Date: 20090915
  Transmission Date: 20100115
  Serious: Yes (Other)
  Sender: FDA-Public Use
  Company Number: PHHY2009US36466

PATIENT
  Sex: Female
  Weight: 52.154 kg

DRUGS (14)
  1. MYFORTIC [Suspect]
     Indication: RENAL TRANSPLANT
     Dosage: 720 MG, BID
     Route: 048
  2. MYFORTIC [Suspect]
     Dosage: 360 MG, BID
     Route: 048
  3. PROGRAF [Concomitant]
     Indication: RENAL TRANSPLANT
     Dosage: 3 MG, BID
     Route: 048
  4. PROGRAF [Concomitant]
     Dosage: 3 MG, BID
     Route: 048
  5. PROGRAF [Concomitant]
     Dosage: 2 MG, BID
     Route: 048
  6. PROGRAF [Concomitant]
     Dosage: 3 MG, BID
     Route: 048
  7. PREDNISONE [Concomitant]
     Indication: RENAL TRANSPLANT
     Dosage: 10 MG, QD
     Route: 048
  8. DAPSONE [Concomitant]
  9. CELEXA [Concomitant]
     Dosage: 20 MG, QD
     Route: 048
  10. THYROXIN [Concomitant]
     Dosage: 0.5 MG, QD
     Route: 048
  11. VALCYTE [Concomitant]
     Dosage: 450 MG, UNK
     Route: 048
  12. VALCYTE [Concomitant]
     Dosage: 450 MG, QOD
     Route: 048
  13. METOPROLOL TARTRATE [Concomitant]
     Dosage: 25 MG, QD
     Route: 048
  14. CONTRACEPTIVES NOS [Concomitant]

REACTIONS (2)
  - DRUG EXPOSURE DURING PREGNANCY [None]
  - POLYHYDRAMNIOS [None]
